FAERS Safety Report 13476641 (Version 1)
Quarter: 2017Q2

REPORT INFORMATION
  Report Type: Spontaneous
  Country: US (occurrence: US)
  Receive Date: 20170424
  Receipt Date: 20170424
  Transmission Date: 20170830
  Serious: Yes (Hospitalization)
  Sender: FDA-Public Use
  Company Number: None

PATIENT
  Age: 57 Year
  Sex: Male
  Weight: 109.68 kg

DRUGS (15)
  1. EPCLUSA [Suspect]
     Active Substance: SOFOSBUVIR\VELPATASVIR
     Indication: HEPATITIS C
     Route: 048
     Dates: start: 20161002, end: 20170319
  2. KEFLEX [Concomitant]
     Active Substance: CEPHALEXIN
  3. FUROSEMIDE. [Concomitant]
     Active Substance: FUROSEMIDE
  4. COMBIVENT [Concomitant]
     Active Substance: ALBUTEROL SULFATE\IPRATROPIUM BROMIDE
  5. ALDACTONE [Concomitant]
     Active Substance: SPIRONOLACTONE
  6. PROPRANOLOL [Concomitant]
     Active Substance: PROPRANOLOL HYDROCHLORIDE
  7. ZOFRAN [Concomitant]
     Active Substance: ONDANSETRON HYDROCHLORIDE
  8. CEFTRIAXON [Concomitant]
     Active Substance: CEFTRIAXONE
  9. CEFAZOLIN [Concomitant]
     Active Substance: CEFAZOLIN
  10. MULTIVITAMIN [Concomitant]
     Active Substance: VITAMINS
  11. LACTULOSE. [Concomitant]
     Active Substance: LACTULOSE
  12. ACETAMINOPHEN. [Concomitant]
     Active Substance: ACETAMINOPHEN
  13. ALBUMIN [Concomitant]
     Active Substance: ALBUMIN HUMAN
  14. ANTIBIOTICS [Concomitant]
     Active Substance: UNSPECIFIED INGREDIENT
  15. FLU SHOT [Concomitant]
     Active Substance: INFLUENZA VIRUS VACCINE

REACTIONS (1)
  - Ascites [None]

NARRATIVE: CASE EVENT DATE: 20170103
